FAERS Safety Report 4955230-7 (Version None)
Quarter: 2006Q1

REPORT INFORMATION
  Report Type: 
  Country: None (occurrence: None)
  Receive Date: 20060328
  Receipt Date: 20060317
  Transmission Date: 20060701
  Serious: Yes (Other)
  Sender: FDA-Public Use
  Company Number: US-JNJFOC-20060305032

PATIENT
  Sex: Male
  Weight: 104.78 kg

DRUGS (1)
  1. REMICADE [Suspect]
     Indication: CROHN'S DISEASE
     Route: 042

REACTIONS (2)
  - INTESTINAL PERFORATION [None]
  - NEOPLASM MALIGNANT [None]
